FAERS Safety Report 6771186-9 (Version None)
Quarter: 2010Q2

REPORT INFORMATION
  Report Type: 
  Country: None (occurrence: None)
  Receive Date: 20100616
  Receipt Date: 20100608
  Transmission Date: 20101027
  Serious: Yes (Death)
  Sender: FDA-Public Use
  Company Number: US-WYE-H15529810

PATIENT
  Age: 59 Year
  Sex: Male

DRUGS (2)
  1. PIPERACILLIN AND TAZOBACTAM [Suspect]
     Indication: PNEUMONIA STREPTOCOCCAL
     Dosage: UNKNOWN
  2. PIPERACILLIN AND TAZOBACTAM [Suspect]
     Indication: FUSOBACTERIUM INFECTION

REACTIONS (4)
  - ENTEROCOCCAL INFECTION [None]
  - FUSOBACTERIUM INFECTION [None]
  - PYOTHORAX [None]
  - STREPTOCOCCAL INFECTION [None]
